FAERS Safety Report 4523224-1 (Version None)
Quarter: 2004Q4

REPORT INFORMATION
  Report Type: 
  Country: None (occurrence: None)
  Receive Date: 20041209
  Receipt Date: 20041209
  Transmission Date: 20050328
  Serious: No
  Sender: FDA-Public Use
  Company Number: None

PATIENT
  Age: 45 Year
  Sex: Female
  Weight: 67.1324 kg

DRUGS (2)
  1. REMERON [Suspect]
     Indication: ANXIETY
     Dosage: 15 MG 1 1/2 QHS
     Dates: start: 20030420, end: 20030428
  2. REMERON [Suspect]
     Indication: DEPRESSION
     Dosage: 15 MG 1 1/2 QHS
     Dates: start: 20030420, end: 20030428

REACTIONS (3)
  - NIGHT SWEATS [None]
  - PHARMACEUTICAL PRODUCT COMPLAINT [None]
  - STOMACH DISCOMFORT [None]
